FAERS Safety Report 4705566-X (Version None)
Quarter: 2005Q2

REPORT INFORMATION
  Report Type: 
  Country: None (occurrence: None)
  Receive Date: 20050629
  Receipt Date: 20050127
  Transmission Date: 20051028
  Serious: Yes (Hospitalization)
  Sender: FDA-Public Use
  Company Number: 200412876EU

PATIENT
  Age: 46 Year
  Sex: Female
  Weight: 58 kg

DRUGS (2)
  1. TRASTUZUMAB SOLUTION FOR INJECTION [Suspect]
     Indication: BREAST CANCER
     Dosage: 348 MG/DAY IV
     Route: 042
     Dates: start: 20040128, end: 20040723
  2. PERFALGAN [Concomitant]

REACTIONS (4)
  - CATHETER RELATED COMPLICATION [None]
  - INTERNATIONAL NORMALISED RATIO DECREASED [None]
  - INTRACARDIAC THROMBUS [None]
  - MASS [None]
